FAERS Safety Report 21801458 (Version 1)
Quarter: 2022Q4

REPORT INFORMATION
  Report Type: Spontaneous
  Country: US (occurrence: None)
  Receive Date: 20221230
  Receipt Date: 20221230
  Transmission Date: 20230113
  Serious: Yes (Other)
  Sender: FDA-Public Use
  Company Number: None

PATIENT
  Age: 52 Year
  Sex: Female
  Weight: 74.8 kg

DRUGS (1)
  1. EMGALITY [Suspect]
     Active Substance: GALCANEZUMAB-GNLM
     Indication: Migraine
     Dosage: FREQUENCY : MONTHLY;?
     Route: 058

REACTIONS (5)
  - Eye disorder [None]
  - Vision blurred [None]
  - Visual impairment [None]
  - Visual acuity reduced [None]
  - Astigmatism [None]

NARRATIVE: CASE EVENT DATE: 20221113
